FAERS Safety Report 8007975-2 (Version None)
Quarter: 2011Q4

REPORT INFORMATION
  Report Type: 
  Country: None (occurrence: None)
  Receive Date: 20111227
  Receipt Date: 20111213
  Transmission Date: 20120403
  Serious: Yes (Hospitalization, Other)
  Sender: FDA-Public Use
  Company Number: PHHY2011DE105161

PATIENT

DRUGS (1)
  1. FEMARA [Suspect]
     Dosage: 2.5 MG, UNK
     Route: 048
     Dates: start: 20070925

REACTIONS (2)
  - RENAL CELL CARCINOMA RECURRENT [None]
  - GENERAL PHYSICAL HEALTH DETERIORATION [None]
